FAERS Safety Report 17115759 (Version 1)
Quarter: 2019Q4

REPORT INFORMATION
  Report Type: Spontaneous
  Country: US (occurrence: US)
  Receive Date: 20191204
  Receipt Date: 20191204
  Transmission Date: 20200122
  Serious: Yes (Hospitalization)
  Sender: FDA-Public Use
  Company Number: None

PATIENT
  Age: 84 Year
  Sex: Male
  Weight: 89.7 kg

DRUGS (11)
  1. VITAMIN D 400MG DAILY [Concomitant]
  2. ESCITALOPRAM 10MG DAILY [Concomitant]
  3. POTASSIUM 20MEQ BID [Concomitant]
  4. RIVAROXABAN [Suspect]
     Active Substance: RIVAROXABAN
     Indication: CORONARY ARTERY DISEASE
     Route: 048
     Dates: start: 20130221
  5. CLOPIDOGREL [Suspect]
     Active Substance: CLOPIDOGREL BISULFATE
     Indication: CORONARY ARTERY DISEASE
     Route: 048
     Dates: start: 20130221
  6. VITAMIN E 400 UNITS DAILY [Concomitant]
  7. CARVEDILOL 6.25MG BID [Concomitant]
  8. LEVOTHROXINE 112MCG DAILY [Concomitant]
  9. MECLIZINE 12.5MG DAILY [Concomitant]
  10. AMLODIPINE 10MG DAILY [Concomitant]
  11. DILTIAZEM 90MG BID [Concomitant]

REACTIONS (8)
  - Haemorrhage [None]
  - Pain in extremity [None]
  - Skin abrasion [None]
  - Skin laceration [None]
  - Fall [None]
  - Muscular weakness [None]
  - Constipation [None]
  - Contusion [None]

NARRATIVE: CASE EVENT DATE: 20130626
